FAERS Safety Report 8886879 (Version 2)
Quarter: 2012Q4

REPORT INFORMATION
  Report Type: Report from Study
  Country: US (occurrence: US)
  Receive Date: 20121105
  Receipt Date: 20121126
  Transmission Date: 20130627
  Serious: Yes (Hospitalization)
  Sender: FDA-Public Use
  Company Number: US-CELGENEUS-163-50794-12092305

PATIENT
  Age: 75 Year
  Sex: Male

DRUGS (23)
  1. VIDAZA [Suspect]
     Indication: CHRONIC MYELOGENOUS LEUKEMIA
     Dosage: 75 milligram/sq. meter
     Route: 041
     Dates: start: 20120816, end: 20120820
  2. VIDAZA [Suspect]
     Indication: MDS
  3. SORAFENIB [Suspect]
     Indication: CHRONIC MYELOGENOUS LEUKEMIA
     Dosage: 200 Milligram
     Route: 048
     Dates: start: 20120816, end: 20120912
  4. SORAFENIB [Suspect]
     Indication: MDS
     Dosage: 200 Milligram
     Route: 048
  5. BLOOD [Concomitant]
     Indication: ANEMIA
     Dosage: 1 unit
     Route: 041
  6. ASPIRINE [Concomitant]
     Indication: ANTICOAGULANT THERAPY
     Dosage: 81 Milligram
     Route: 048
  7. AVODART [Concomitant]
     Indication: DRUG USE FOR UNKNOWN INDICATION
     Dosage: .5 Milligram
     Route: 048
  8. FLOMAX [Concomitant]
     Indication: DRUG USE FOR UNKNOWN INDICATION
     Dosage: .8 Milligram
     Route: 048
  9. LIPITOR [Concomitant]
     Indication: DRUG USE FOR UNKNOWN INDICATION
     Dosage: 10 Milligram
     Route: 048
  10. LUMIGAN [Concomitant]
     Indication: DRUG USE FOR UNKNOWN INDICATION
     Dosage: 1 Drops
     Route: 047
  11. NIASPAN [Concomitant]
     Indication: DRUG USE FOR UNKNOWN INDICATION
     Dosage: 500 Milligram
     Route: 048
  12. NIASPAN [Concomitant]
     Dosage: 1000 Milligram
     Route: 048
  13. MELOXICAM [Concomitant]
     Indication: PAIN
     Dosage: 7.5 Milligram
     Route: 048
  14. MULTIVITAMINS [Concomitant]
     Indication: DRUG USE FOR UNKNOWN INDICATION
     Route: 065
  15. FLEXERIL [Concomitant]
     Indication: SPASMS
     Dosage: 30 Milligram
     Route: 048
  16. JAKAFI [Concomitant]
     Indication: DRUG USE FOR UNKNOWN INDICATION
     Dosage: 30 Milligram
  17. SINGULAIR [Concomitant]
     Indication: DRUG USE FOR UNKNOWN INDICATION
     Dosage: 10 Milligram
     Route: 048
  18. ALLOPURINOL [Concomitant]
     Indication: DRUG USE FOR UNKNOWN INDICATION
     Dosage: 300 Milligram
     Route: 048
  19. FOSINOPRIL [Concomitant]
     Indication: DRUG USE FOR UNKNOWN INDICATION
     Dosage: 20 Milligram
     Route: 048
  20. HYDROXYUREA [Concomitant]
     Indication: DRUG USE FOR UNKNOWN INDICATION
     Dosage: 500 Milligram
     Route: 048
  21. SODIUM CHLORIDE [Concomitant]
     Indication: DRUG USE FOR UNKNOWN INDICATION
     Dosage: 500 milliliter
     Route: 041
  22. IMODIUM [Concomitant]
     Indication: DIARRHEA
     Dosage: 12 Milligram
     Route: 048
  23. ALBUTEROL [Concomitant]
     Indication: DIARRHEA
     Dosage: 360 Microgram
     Route: 055

REACTIONS (1)
  - Inappropriate antidiuretic hormone secretion [Unknown]
